FAERS Safety Report 6578152-7 (Version None)
Quarter: 2010Q1

REPORT INFORMATION
  Report Type: 
  Country: None (occurrence: None)
  Receive Date: 20100211
  Receipt Date: 20100203
  Transmission Date: 20100710
  Serious: Yes (Other)
  Sender: FDA-Public Use
  Company Number: US-JNJCH-2010003602

PATIENT
  Age: 19 Year
  Sex: Male

DRUGS (1)
  1. LISTERINE [Suspect]
     Indication: ALCOHOL USE
     Dosage: TEXT:UNKNOWN
     Route: 048

REACTIONS (2)
  - INCORRECT ROUTE OF DRUG ADMINISTRATION [None]
  - INTENTIONAL DRUG MISUSE [None]
